FAERS Safety Report 15111993 (Version 1)
Quarter: 2018Q3

REPORT INFORMATION
  Report Type: Spontaneous
  Country: CN (occurrence: CN)
  Receive Date: 20180705
  Receipt Date: 20180705
  Transmission Date: 20181010
  Serious: Yes (Hospitalization)
  Sender: FDA-Public Use
  Company Number: CN-EISAI MEDICAL RESEARCH-EC-2018-042176

PATIENT
  Age: 80 Year
  Sex: Male

DRUGS (2)
  1. ARICEPT [Suspect]
     Active Substance: DONEPEZIL HYDROCHLORIDE
     Route: 048
     Dates: start: 20180406, end: 20180416
  2. ARICEPT [Suspect]
     Active Substance: DONEPEZIL HYDROCHLORIDE
     Indication: SENILE DEMENTIA
     Route: 048
     Dates: start: 20180405, end: 20180405

REACTIONS (6)
  - Tremor [Recovering/Resolving]
  - Mental impairment [Recovering/Resolving]
  - Memory impairment [Recovering/Resolving]
  - Dysphoria [Recovered/Resolved]
  - Mental disorder [Recovering/Resolving]
  - Hallucination, visual [Recovered/Resolved]

NARRATIVE: CASE EVENT DATE: 20180405
